FAERS Safety Report 6177642-9 (Version None)
Quarter: 2009Q2

REPORT INFORMATION
  Report Type: 
  Country: None (occurrence: None)
  Receive Date: 20090501
  Receipt Date: 20090501
  Transmission Date: 20091009
  Serious: Yes (Other)
  Sender: FDA-Public Use
  Company Number: None

PATIENT
  Sex: Male

DRUGS (1)
  1. DIVALPROEX EXTENDED-RELEASE [Suspect]
     Indication: EPILEPSY
     Dosage: 500 MG

REACTIONS (2)
  - CONDITION AGGRAVATED [None]
  - CONVULSION [None]
